FAERS Safety Report 13358465 (Version 2)
Quarter: 2017Q2

REPORT INFORMATION
  Report Type: Spontaneous
  Country: JP (occurrence: JP)
  Receive Date: 20170322
  Receipt Date: 20170427
  Transmission Date: 20170830
  Serious: Yes (Death, Life-Threatening)
  Sender: FDA-Public Use
  Company Number: JP-EISAI MEDICAL RESEARCH-EC-2017-026044

PATIENT
  Age: 66 Year
  Sex: Female

DRUGS (5)
  1. DUROTEP [Suspect]
     Active Substance: FENTANYL
     Indication: CANCER PAIN
     Route: 062
     Dates: start: 20170227, end: 20170303
  2. HALAVEN [Suspect]
     Active Substance: ERIBULIN MESYLATE
     Indication: UTERINE LEIOMYOSARCOMA
     Route: 041
     Dates: start: 20170203, end: 20170210
  3. HALAVEN [Suspect]
     Active Substance: ERIBULIN MESYLATE
     Route: 041
     Dates: start: 20170224, end: 20170224
  4. LOXONIN [Concomitant]
     Active Substance: LOXOPROFEN SODIUM
     Indication: CANCER PAIN
     Route: 048
  5. OXYCONTIN [Concomitant]
     Active Substance: OXYCODONE HYDROCHLORIDE
     Indication: CANCER PAIN
     Route: 048
     Dates: end: 20170227

REACTIONS (6)
  - Ileus [Unknown]
  - Vomiting [Not Recovered/Not Resolved]
  - Respiratory failure [Fatal]
  - Infection [Not Recovered/Not Resolved]
  - Febrile neutropenia [Not Recovered/Not Resolved]
  - Dehydration [Not Recovered/Not Resolved]

NARRATIVE: CASE EVENT DATE: 20170303
